FAERS Safety Report 6170743-0 (Version None)
Quarter: 2009Q2

REPORT INFORMATION
  Report Type: 
  Country: None (occurrence: None)
  Receive Date: 20090427
  Receipt Date: 20090413
  Transmission Date: 20091009
  Serious: Yes (Hospitalization)
  Sender: FDA-Public Use
  Company Number: ADE# 09-071DPR

PATIENT
  Age: 58 Year
  Sex: Male

DRUGS (1)
  1. DIGOXIN [Suspect]
     Indication: CARDIAC DISORDER
     Dates: start: 19930101

REACTIONS (2)
  - ARRHYTHMIA [None]
  - VENTRICULAR TACHYCARDIA [None]
